FAERS Safety Report 7234581-X (Version None)
Quarter: 2011Q1

REPORT INFORMATION
  Report Type: 
  Country: None (occurrence: None)
  Receive Date: 20110120
  Receipt Date: 20110111
  Transmission Date: 20110831
  Serious: Yes (Other)
  Sender: FDA-Public Use
  Company Number: US-BIOGENIDEC-2010BI013388

PATIENT
  Sex: Female

DRUGS (1)
  1. TYSABRI [Suspect]
     Indication: MULTIPLE SCLEROSIS
     Route: 042
     Dates: start: 20091211

REACTIONS (6)
  - NEURALGIA [None]
  - FATIGUE [None]
  - CONVULSION [None]
  - PETIT MAL EPILEPSY [None]
  - EAR INFECTION [None]
  - SINUSITIS [None]
